FAERS Safety Report 4272873-7 (Version None)
Quarter: 2004Q1

REPORT INFORMATION
  Report Type: 
  Country: None (occurrence: None)
  Receive Date: 20040115
  Receipt Date: 20031219
  Transmission Date: 20041129
  Serious: Yes (Death)
  Sender: FDA-Public Use
  Company Number: 6936

PATIENT
  Age: 73 Year
  Sex: Female

DRUGS (1)
  1. AMIODARONE [Suspect]
     Indication: ATRIAL FIBRILLATION
     Dates: start: 20000101

REACTIONS (8)
  - ATRIAL FIBRILLATION [None]
  - BRONCHIECTASIS [None]
  - DRUG TOXICITY [None]
  - DYSPNOEA [None]
  - HYPERCAPNIA [None]
  - HYPOTENSION [None]
  - LOSS OF CONSCIOUSNESS [None]
  - PULMONARY FIBROSIS [None]
